FAERS Safety Report 9308011 (Version 3)
Quarter: 2013Q3

REPORT INFORMATION
  Report Type: Report from Study
  Country: DE (occurrence: DE)
  Receive Date: 20130524
  Receipt Date: 20130821
  Transmission Date: 20140515
  Serious: Yes (Hospitalization)
  Sender: FDA-Public Use
  Company Number: DE-SANOFI-AVENTIS-2013SA051226

PATIENT
  Age: 60 Year
  Sex: Female
  Weight: 94.2 kg

DRUGS (8)
  1. DOCETAXEL [Suspect]
     Indication: BREAST CANCER
     Route: 041
     Dates: start: 20090929, end: 20090929
  2. DOCETAXEL [Suspect]
     Indication: BREAST CANCER
     Route: 041
     Dates: start: 20091110, end: 20091110
  3. 5-FU [Suspect]
     Indication: BREAST CANCER
     Route: 041
     Dates: start: 20090728, end: 20090728
  4. 5-FU [Suspect]
     Indication: BREAST CANCER
     Route: 041
     Dates: start: 20090908, end: 20090908
  5. EPIRUBICIN [Suspect]
     Indication: BREAST CANCER
     Route: 041
     Dates: start: 20090728, end: 20090728
  6. EPIRUBICIN [Suspect]
     Indication: BREAST CANCER
     Route: 041
     Dates: start: 20090908, end: 20090908
  7. CYCLOPHOSPHAMIDE [Suspect]
     Indication: BREAST CANCER
     Route: 041
     Dates: start: 20090728, end: 20090728
  8. CYCLOPHOSPHAMIDE [Suspect]
     Indication: BREAST CANCER
     Route: 041
     Dates: start: 20090908, end: 20090908

REACTIONS (1)
  - Lymphoma [Not Recovered/Not Resolved]
